FAERS Safety Report 7515804-6 (Version None)
Quarter: 2011Q2

REPORT INFORMATION
  Report Type: 
  Country: None (occurrence: None)
  Receive Date: 20110601
  Receipt Date: 20110523
  Transmission Date: 20111010
  Serious: Yes (Hospitalization, Other)
  Sender: FDA-Public Use
  Company Number: US-ASTRAZENECA-2011SE31715

PATIENT
  Age: 53 Year
  Sex: Female

DRUGS (2)
  1. NEXIUM [Suspect]
     Route: 048
  2. SYMBICORT [Suspect]
     Dosage: 160/4.5 UG, UNK
     Route: 055

REACTIONS (5)
  - PELVIC FRACTURE [None]
  - UPPER LIMB FRACTURE [None]
  - DRUG DOSE OMISSION [None]
  - HIP FRACTURE [None]
  - DYSPNOEA [None]
